FAERS Safety Report 8846628 (Version 1)
Quarter: 2012Q4

REPORT INFORMATION
  Report Type: 
  Country: US (occurrence: US)
  Receive Date: 20121017
  Receipt Date: 20121017
  Transmission Date: 20130627
  Serious: No
  Sender: FDA-Public Use
  Company Number: US-BAYER-2012-107507

PATIENT
  Age: 2 Year
  Sex: Male
  Weight: 14 kg

DRUGS (2)
  1. ALEVE GELCAP [Suspect]
     Dosage: 1-2 DF, UNK
     Route: 048
     Dates: start: 20121009, end: 20121009
  2. ^BREATHING MACHINE^ WHEN NEEDED [Concomitant]

REACTIONS (1)
  - No adverse event [None]
